FAERS Safety Report 4880043-4 (Version None)
Quarter: 2006Q1

REPORT INFORMATION
  Report Type: 
  Country: None (occurrence: None)
  Receive Date: 20060111
  Receipt Date: 20051220
  Transmission Date: 20060701
  Serious: Yes (Hospitalization, Other)
  Sender: FDA-Public Use
  Company Number: US200512003518

PATIENT
  Age: 40 Year
  Sex: Female

DRUGS (1)
  1. CYMBALTA [Suspect]

REACTIONS (5)
  - ANGER [None]
  - COLITIS [None]
  - GASTROINTESTINAL DISORDER [None]
  - INTESTINAL HAEMORRHAGE [None]
  - MALAISE [None]
